FAERS Safety Report 13155672 (Version 1)
Quarter: 2017Q1

REPORT INFORMATION
  Report Type: Spontaneous
  Country: US (occurrence: US)
  Receive Date: 20170126
  Receipt Date: 20170126
  Transmission Date: 20170428
  Serious: No
  Sender: FDA-Public Use
  Company Number: US-ROCHE-GNE307262

PATIENT
  Sex: Male
  Weight: 103.97 kg

DRUGS (2)
  1. CONCOMITANT DRUGS [Concomitant]
     Indication: PRODUCT USED FOR UNKNOWN INDICATION
  2. CATHFLO ACTIVASE [Suspect]
     Active Substance: ALTEPLASE
     Indication: DEVICE OCCLUSION
     Dosage: 2 MG, PRN
     Route: 065

REACTIONS (1)
  - Device related thrombosis [Unknown]
